FAERS Safety Report 9728056 (Version 1)
Quarter: 2013Q4

REPORT INFORMATION
  Report Type: Spontaneous
  Country: US (occurrence: None)
  Receive Date: 20131203
  Receipt Date: 20131203
  Transmission Date: 20140711
  Serious: Yes (Life-Threatening, Disabling, Other)
  Sender: FDA-Public Use
  Company Number: None

PATIENT
  Age: 48 Year
  Sex: Male
  Weight: 83.92 kg

DRUGS (2)
  1. CITALOPRAM 20 MG [Suspect]
     Indication: ANXIETY
     Dosage: 1 PILL A DAY, ONCE DAILY, TAKEN BY MOUTH
     Route: 048
     Dates: start: 20090501, end: 20100228
  2. CITALOPRAM 20 MG [Suspect]
     Indication: STRESS
     Dosage: 1 PILL A DAY, ONCE DAILY, TAKEN BY MOUTH
     Route: 048
     Dates: start: 20090501, end: 20100228

REACTIONS (10)
  - Mood altered [None]
  - Ejaculation failure [None]
  - Scab [None]
  - Anhedonia [None]
  - Paraesthesia [None]
  - Hyperacusis [None]
  - Suicidal ideation [None]
  - Depression [None]
  - Panic attack [None]
  - Tooth fracture [None]
